FAERS Safety Report 6828626-6 (Version None)
Quarter: 2010Q3

REPORT INFORMATION
  Report Type: 
  Country: None (occurrence: None)
  Receive Date: 20100709
  Receipt Date: 20070214
  Transmission Date: 20110219
  Serious: No
  Sender: FDA-Public Use
  Company Number: US-PFIZER INC-2007013012

PATIENT
  Sex: Male
  Weight: 67.59 kg

DRUGS (9)
  1. CHANTIX [Suspect]
     Indication: SMOKING CESSATION THERAPY
     Dates: start: 20070210
  2. PRINIVIL [Concomitant]
  3. LISINOPRIL AND HYDROCHLOROTHIAZIDE [Concomitant]
  4. METOPROLOL [Concomitant]
  5. LUTEIN [Concomitant]
  6. ACETYLSALICYLIC ACID [Concomitant]
  7. LOVASTATIN [Concomitant]
  8. MULTI-VITAMINS [Concomitant]
  9. MILK THISTLE [Concomitant]
     Indication: HEPATITIS C

REACTIONS (2)
  - ABNORMAL DREAMS [None]
  - CONSTIPATION [None]
